FAERS Safety Report 7665589-8 (Version None)
Quarter: 2011Q3

REPORT INFORMATION
  Report Type: 
  Country: None (occurrence: None)
  Receive Date: 20110806
  Receipt Date: 20110524
  Transmission Date: 20111222
  Serious: No
  Sender: FDA-Public Use
  Company Number: US-ABBOTT-11P-163-0728157-00

PATIENT
  Sex: Female
  Weight: 83.082 kg

DRUGS (6)
  1. NIASPAN [Suspect]
     Indication: LIPIDS ABNORMAL
     Dosage: TITRATING TO 2000MG IN FIRST 6 MONTHS
     Dates: start: 20080101
  2. LEVOTHYROXINE SODIUM [Concomitant]
     Indication: PRODUCT USED FOR UNKNOWN INDICATION
  3. VITAMIN D [Concomitant]
     Indication: PRODUCT USED FOR UNKNOWN INDICATION
  4. FISH OIL [Concomitant]
     Indication: PRODUCT USED FOR UNKNOWN INDICATION
  5. NIASPAN [Suspect]
     Dosage: 2000MG AT BEDTIME
  6. ASPIRIN [Concomitant]
     Indication: PRODUCT USED FOR UNKNOWN INDICATION
     Dosage: 325 DAILY

REACTIONS (2)
  - ARTHRALGIA [None]
  - DYSURIA [None]
